FAERS Safety Report 7959981-1 (Version None)
Quarter: 2011Q4

REPORT INFORMATION
  Report Type: 
  Country: None (occurrence: None)
  Receive Date: 20111206
  Receipt Date: 20111124
  Transmission Date: 20120403
  Serious: Yes (Hospitalization, Other)
  Sender: FDA-Public Use
  Company Number: PHFR2011GB006778

PATIENT
  Sex: Male

DRUGS (1)
  1. CLOZARIL [Suspect]
     Indication: SCHIZOPHRENIA
     Route: 048
     Dates: start: 20100118

REACTIONS (4)
  - UPPER LIMB FRACTURE [None]
  - ANTIPSYCHOTIC DRUG LEVEL INCREASED [None]
  - CONTUSION [None]
  - FALL [None]
